FAERS Safety Report 7563421-4 (Version None)
Quarter: 2011Q2

REPORT INFORMATION
  Report Type: 
  Country: None (occurrence: None)
  Receive Date: 20110622
  Receipt Date: 20110614
  Transmission Date: 20111010
  Serious: Yes (Other)
  Sender: FDA-Public Use
  Company Number: B0724028A

PATIENT
  Sex: Male

DRUGS (4)
  1. HARNAL D [Concomitant]
     Indication: BENIGN PROSTATIC HYPERPLASIA
     Dosage: .2MG PER DAY
     Route: 048
  2. ALDACTONE [Concomitant]
     Dosage: 25MG PER DAY
     Route: 048
  3. DUTASTERIDE [Suspect]
     Indication: DYSURIA
     Dosage: .5MG PER DAY
     Route: 048
     Dates: start: 20110215, end: 20110201
  4. FUROSEMIDE [Concomitant]
     Dosage: 20MG PER DAY

REACTIONS (2)
  - ERYTHEMA [None]
  - BLISTER [None]
